FAERS Safety Report 7096845-2 (Version None)
Quarter: 2010Q4

REPORT INFORMATION
  Report Type: 
  Country: None (occurrence: None)
  Receive Date: 20101111
  Receipt Date: 20101101
  Transmission Date: 20110411
  Serious: Yes (Other)
  Sender: FDA-Public Use
  Company Number: US-ROCHE-718989

PATIENT
  Sex: Male
  Weight: 61.2 kg

DRUGS (12)
  1. ACCUTANE [Suspect]
     Route: 048
     Dates: start: 19930301
  2. ACCUTANE [Suspect]
     Route: 048
     Dates: start: 19930514
  3. ACCUTANE [Suspect]
     Route: 048
     Dates: start: 19930623, end: 19930913
  4. ACCUTANE [Suspect]
     Route: 048
     Dates: start: 19990731, end: 19990819
  5. BENZAMYCIN [Concomitant]
     Dates: start: 19950216
  6. MINOCYCLINE HCL [Concomitant]
  7. SEPTRA [Concomitant]
     Indication: ACNE
     Dates: start: 19990203
  8. CLEOCIN T [Concomitant]
     Dates: start: 19950216
  9. DIFFERIN [Concomitant]
     Dates: start: 19990203
  10. NOVACET LOTION [Concomitant]
  11. CETAPHIL [Concomitant]
     Indication: DRY SKIN
  12. VANCERIL [Concomitant]

REACTIONS (7)
  - BACK PAIN [None]
  - COLITIS ULCERATIVE [None]
  - DEPRESSION [None]
  - DIARRHOEA HAEMORRHAGIC [None]
  - GASTROINTESTINAL INJURY [None]
  - JOINT INJURY [None]
  - NECK INJURY [None]
